FAERS Safety Report 9313268 (Version 1)
Quarter: 2013Q2

REPORT INFORMATION
  Report Type: Spontaneous
  Country: US (occurrence: US)
  Receive Date: 20130528
  Receipt Date: 20130528
  Transmission Date: 20140414
  Serious: No
  Sender: FDA-Public Use
  Company Number: US-ABBOTT-13P-163-1064374-00

PATIENT
  Age: 68 Year
  Sex: Male
  Weight: 74 kg

DRUGS (4)
  1. ANDROGEL [Suspect]
     Indication: BLOOD TESTOSTERONE DECREASED
     Route: 061
     Dates: start: 20130104
  2. ANDROGEL [Suspect]
     Indication: BLOOD TESTOSTERONE DECREASED
  3. SYNTHROID [Concomitant]
     Indication: PRODUCT USED FOR UNKNOWN INDICATION
  4. HYDROCORTISONE [Concomitant]
     Indication: PRODUCT USED FOR UNKNOWN INDICATION

REACTIONS (2)
  - Drug dose omission [Not Recovered/Not Resolved]
  - Application site pruritus [Not Recovered/Not Resolved]
